FAERS Safety Report 5639108-1 (Version None)
Quarter: 2008Q1

REPORT INFORMATION
  Report Type: 
  Country: None (occurrence: None)
  Receive Date: 20080226
  Receipt Date: 20080215
  Transmission Date: 20080703
  Serious: Yes (Hospitalization)
  Sender: FDA-Public Use
  Company Number: US-ELI_LILLY_AND_COMPANY-US200802003815

PATIENT
  Sex: Female

DRUGS (5)
  1. CYMBALTA [Suspect]
     Indication: DEPRESSION
     Dates: start: 20070920, end: 20070920
  2. THYROID TAB [Concomitant]
  3. KADIAN [Concomitant]
  4. HYDROCODONE BITARTRATE [Concomitant]
     Dosage: UNK, AS NEEDED
  5. HORMONES AND RELATED AGENTS [Concomitant]

REACTIONS (13)
  - ACTIVITIES OF DAILY LIVING IMPAIRED [None]
  - ARRHYTHMIA [None]
  - FEAR OF FALLING [None]
  - FEMUR FRACTURE [None]
  - HAEMORRHAGE [None]
  - IMPAIRED HEALING [None]
  - JOINT RANGE OF MOTION DECREASED [None]
  - LOSS OF CONSCIOUSNESS [None]
  - LUMBAR VERTEBRAL FRACTURE [None]
  - PAIN [None]
  - SPINAL CORD COMPRESSION [None]
  - TIBIA FRACTURE [None]
  - WHEELCHAIR USER [None]
